FAERS Safety Report 13955407 (Version 1)
Quarter: 2017Q3

REPORT INFORMATION
  Report Type: Spontaneous
  Country: US (occurrence: US)
  Receive Date: 20170911
  Receipt Date: 20170911
  Transmission Date: 20171128
  Serious: Yes (Hospitalization, Other)
  Sender: FDA-Public Use
  Company Number: US-ZYDUS-016504

PATIENT
  Age: 26 Year
  Sex: Male

DRUGS (1)
  1. OXYCODONE [Suspect]
     Active Substance: OXYCODONE
     Indication: PAIN
     Route: 042

REACTIONS (11)
  - Incorrect route of drug administration [Unknown]
  - Dyspnoea [Unknown]
  - Osteomyelitis [Unknown]
  - Right ventricular enlargement [Unknown]
  - Right ventricular systolic pressure increased [Unknown]
  - Intentional product misuse [Unknown]
  - Pulmonary granuloma [Unknown]
  - Pulmonary hypertension [Unknown]
  - Hypoxia [Unknown]
  - Pulmonary artery dilatation [Unknown]
  - Jugular vein distension [Unknown]

NARRATIVE: CASE EVENT DATE: 2005
